FAERS Safety Report 6264467-9 (Version None)
Quarter: 2009Q3

REPORT INFORMATION
  Report Type: 
  Country: None (occurrence: None)
  Receive Date: 20090710
  Receipt Date: 20090707
  Transmission Date: 20100115
  Serious: Yes (Other)
  Sender: FDA-Public Use
  Company Number: FR-ROXANE LABORATORIES, INC.-2009-RO-00656RO

PATIENT
  Age: 65 Year
  Sex: Female

DRUGS (7)
  1. FLUTICASONE [Suspect]
     Indication: BRONCHOSPASM
     Dosage: 500 MCG
     Route: 055
  2. LOPINAVIR [Suspect]
     Indication: ACQUIRED IMMUNODEFICIENCY SYNDROME
  3. RITONAVIR [Suspect]
     Indication: ACQUIRED IMMUNODEFICIENCY SYNDROME
     Dosage: 200 MG
  4. DIDANOSINE [Suspect]
     Indication: ACQUIRED IMMUNODEFICIENCY SYNDROME
  5. LAMIVUDINE [Suspect]
     Indication: ACQUIRED IMMUNODEFICIENCY SYNDROME
  6. FOSAMPRENAVIR [Suspect]
     Indication: ACQUIRED IMMUNODEFICIENCY SYNDROME
  7. HYDROCORTISONE [Concomitant]
     Indication: CUSHING'S SYNDROME

REACTIONS (3)
  - CUSHING'S SYNDROME [None]
  - DRUG INTERACTION [None]
  - OSTEOPOROSIS [None]
